FAERS Safety Report 8967819 (Version 1)
Quarter: 2012Q4

REPORT INFORMATION
  Report Type: Spontaneous
  Country: US (occurrence: None)
  Receive Date: 20121213
  Receipt Date: 20121213
  Transmission Date: 20130627
  Serious: Yes (Other)
  Sender: FDA-Public Use
  Company Number: None

PATIENT
  Age: 62 Year
  Sex: Female
  Weight: 72.58 kg

DRUGS (1)
  1. NATURE^S BOUNTY LUTEIN WITH ZEANTHIN [Suspect]
     Indication: VISUAL ACUITY REDUCED
     Dosage: 6 mgl  1 softgel-daily  po
     Route: 048
     Dates: start: 20121121, end: 20121201

REACTIONS (1)
  - Rash generalised [None]
